FAERS Safety Report 9382983 (Version 1)
Quarter: 2013Q3

REPORT INFORMATION
  Report Type: Spontaneous
  Country: US (occurrence: US)
  Receive Date: 20130703
  Receipt Date: 20130703
  Transmission Date: 20140515
  Serious: Yes (Hospitalization)
  Sender: FDA-Public Use
  Company Number: US-RB-055591-13

PATIENT
  Age: 53 Year
  Sex: Female

DRUGS (1)
  1. SUBOXONE FILM [Suspect]
     Indication: DRUG DEPENDENCE
     Dosage: SUBOXONE FILM
     Route: 060
     Dates: start: 2011, end: 20130619

REACTIONS (4)
  - Intestinal perforation [Not Recovered/Not Resolved]
  - Infection [Not Recovered/Not Resolved]
  - Pancreatic duct dilatation [Unknown]
  - Biliary dilatation [Unknown]
